FAERS Safety Report 25721288 (Version 1)
Quarter: 2025Q3

REPORT INFORMATION
  Report Type: Spontaneous
  Country: EU (occurrence: EU)
  Receive Date: 20250825
  Receipt Date: 20250825
  Transmission Date: 20251020
  Serious: Yes (Hospitalization)
  Sender: MYLAN
  Company Number: EU-MYLANLABS-2025M1070343

PATIENT
  Age: 25 Year
  Sex: Female

DRUGS (6)
  1. PREDNISONE [Suspect]
     Active Substance: PREDNISONE
     Indication: Insulin autoimmune syndrome
     Dosage: 25 MILLIGRAM, QD (FOR 2 WEEKS)
  2. PREDNISONE [Suspect]
     Active Substance: PREDNISONE
     Dosage: 6.25 MILLIGRAM, Q3D,DOSE WAS TAPERED DOWN
  3. ALPHA LIPOIC ACID [Suspect]
     Active Substance: .ALPHA.-LIPOIC ACID
     Indication: Prophylaxis
     Dosage: 600 MILLIGRAM, BID
  4. DEXTROSE [Suspect]
     Active Substance: DEXTROSE MONOHYDRATE
     Indication: Hypoglycaemia
  5. INSULIN ASPART [Suspect]
     Active Substance: INSULIN ASPART
     Indication: Hyperglycaemia
  6. INSULIN ASPART [Suspect]
     Active Substance: INSULIN ASPART

REACTIONS (3)
  - Hyperglycaemia [Recovered/Resolved]
  - Polyhydramnios [Recovered/Resolved]
  - Maternal exposure during pregnancy [Recovered/Resolved]
